FAERS Safety Report 10379204 (Version 1)
Quarter: 2014Q3

REPORT INFORMATION
  Report Type: Spontaneous
  Country: US (occurrence: None)
  Receive Date: 20140811
  Receipt Date: 20140811
  Transmission Date: 20150326
  Serious: Yes (Other)
  Sender: FDA-Public Use
  Company Number: None

PATIENT
  Age: 64 Year
  Sex: Female
  Weight: 52.62 kg

DRUGS (1)
  1. FENTANYL TRANSDERMAL SYSTEM [Suspect]
     Active Substance: FENTANYL
     Indication: PAIN
     Dosage: APPLIED TO MEDICATED PATCH TO SKIN
     Route: 061
     Dates: start: 20140801, end: 20140808

REACTIONS (3)
  - Drug ineffective [None]
  - Product substitution issue [None]
  - Drug withdrawal syndrome [None]

NARRATIVE: CASE EVENT DATE: 20140808
